FAERS Safety Report 9483213 (Version 1)
Quarter: 2013Q3

REPORT INFORMATION
  Report Type: Spontaneous
  Country: US (occurrence: US)
  Receive Date: 20130828
  Receipt Date: 20130828
  Transmission Date: 20140515
  Serious: No
  Sender: FDA-Public Use
  Company Number: US-MUTUAL PHARMACEUTICAL COMPANY, INC.-DXCY20130006

PATIENT
  Sex: Male

DRUGS (1)
  1. DOXYCYCLINE HYCLATE CAPSULES 100 MG [Suspect]
     Indication: PRODUCT USED FOR UNKNOWN INDICATION
     Route: 048
     Dates: start: 20130412

REACTIONS (1)
  - Seborrhoeic dermatitis [Not Recovered/Not Resolved]
